FAERS Safety Report 17808552 (Version 2)
Quarter: 2020Q3

REPORT INFORMATION
  Report Type: Other
  Country: CN (occurrence: CN)
  Receive Date: 20200520
  Receipt Date: 20200812
  Transmission Date: 20201102
  Serious: Yes (Hospitalization, Other)
  Sender: FDA-Public Use
  Company Number: CN-DEXPHARM-20200359

PATIENT
  Age: 28 Year
  Sex: Male

DRUGS (23)
  1. TIGECYCLINE. [Concomitant]
     Active Substance: TIGECYCLINE
  2. OMEPRAZOLE? NOT DEXCEL^S PRODUCT [Suspect]
     Active Substance: OMEPRAZOLE
     Dosage: 40MG BID
     Route: 042
  3. AMIKACIN. [Concomitant]
     Active Substance: AMIKACIN
  4. THYMALFASIN [Concomitant]
     Active Substance: THYMALFASIN
  5. VANCOMYCIN [Concomitant]
     Active Substance: VANCOMYCIN
  6. TIGECYCLINE. [Concomitant]
     Active Substance: TIGECYCLINE
  7. TIGECYCLINE. [Concomitant]
     Active Substance: TIGECYCLINE
  8. CASPOFUNGIN [Concomitant]
     Active Substance: CASPOFUNGIN
  9. VANCOMYCIN [Concomitant]
     Active Substance: VANCOMYCIN
  10. VANCOMYCIN [Concomitant]
     Active Substance: VANCOMYCIN
     Dosage: 24H CONTINUOUS PUMPING
  11. SULFAMETHOXAZOLE [Concomitant]
     Active Substance: SULFAMETHOXAZOLE
  12. SODIUM BICARBONATE. [Concomitant]
     Active Substance: SODIUM BICARBONATE
  13. TEICOPLANIN [Concomitant]
     Active Substance: TEICOPLANIN
  14. MEROPENEM. [Concomitant]
     Active Substance: MEROPENEM
  15. VANCOMYCIN [Concomitant]
     Active Substance: VANCOMYCIN
     Dosage: 24H CONTINUOUS PUMPING
  16. LINEZOLID. [Concomitant]
     Active Substance: LINEZOLID
  17. FLUCONAZOLE. [Concomitant]
     Active Substance: FLUCONAZOLE
  18. CASPOFUNGIN [Concomitant]
     Active Substance: CASPOFUNGIN
  19. CASPOFUNGIN [Concomitant]
     Active Substance: CASPOFUNGIN
  20. VANCOMYCIN [Concomitant]
     Active Substance: VANCOMYCIN
     Dosage: 24H CONTINUOUS PUMPING
  21. METRONIDAZOLE. [Concomitant]
     Active Substance: METRONIDAZOLE
  22. IMIPENEM AND CILASTATIN [Suspect]
     Active Substance: CILASTATIN SODIUM\IMIPENEM
  23. FLUCONAZOLE. [Concomitant]
     Active Substance: FLUCONAZOLE

REACTIONS (1)
  - Stenotrophomonas infection [Recovering/Resolving]
